FAERS Safety Report 6088764-5 (Version None)
Quarter: 2009Q1

REPORT INFORMATION
  Report Type: 
  Country: None (occurrence: None)
  Receive Date: 20090224
  Receipt Date: 20090213
  Transmission Date: 20090719
  Serious: Yes (Hospitalization)
  Sender: FDA-Public Use
  Company Number: BR-PFIZER INC-2006098290

PATIENT

DRUGS (5)
  1. LIPITOR [Suspect]
     Indication: BLOOD CHOLESTEROL INCREASED
     Dosage: 20 MG, 1X/DAY
     Route: 048
     Dates: start: 20050101
  2. LIPITOR [Suspect]
     Dosage: 20 MG, UNK
     Dates: start: 20050101
  3. DIOVAN [Concomitant]
     Dosage: UNK
     Route: 065
     Dates: start: 20050101
  4. SELOZOK [Concomitant]
     Dosage: UNK
     Route: 065
     Dates: start: 20050101
  5. AAS [Concomitant]
     Dosage: UNK
     Route: 065
     Dates: start: 20050101

REACTIONS (1)
  - ARTERIAL OCCLUSIVE DISEASE [None]
